FAERS Safety Report 10730104 (Version 2)
Quarter: 2015Q1

REPORT INFORMATION
  Report Type: Spontaneous
  Country: CZ (occurrence: CZ)
  Receive Date: 20150122
  Receipt Date: 20150210
  Transmission Date: 20150721
  Serious: Yes (Other)
  Sender: FDA-Public Use
  Company Number: CZ-PFIZER INC-2015023170

PATIENT
  Sex: Male

DRUGS (13)
  1. EGILOC [Concomitant]
     Dosage: UNK
  2. SORTIS [Concomitant]
     Active Substance: ATORVASTATIN
     Dosage: UNK
  3. VIGANTOL [Concomitant]
     Dosage: UNK
  4. SOLU-MEDROL [Suspect]
     Active Substance: METHYLPREDNISOLONE SODIUM SUCCINATE
     Indication: NEPHROTIC SYNDROME
  5. PREDNISONE. [Suspect]
     Active Substance: PREDNISONE
     Indication: NEPHROTIC SYNDROME
     Dosage: 10 MG, 1X/DAY
  6. AMESOS [Concomitant]
     Dosage: UNK
  7. PORTORA [Concomitant]
     Dosage: UNK
  8. OMEPRAZOL [Concomitant]
     Active Substance: OMEPRAZOLE
     Dosage: UNK
  9. PREDNISONE. [Suspect]
     Active Substance: PREDNISONE
     Indication: IGA NEPHROPATHY
     Dosage: 60 MG, 1X/DAY
     Dates: start: 2014
  10. SOLU-MEDROL [Suspect]
     Active Substance: METHYLPREDNISOLONE SODIUM SUCCINATE
     Indication: IGA NEPHROPATHY
     Dosage: 3X250 MG PULSES
     Dates: start: 2014
  11. ENBREL [Concomitant]
     Active Substance: ETANERCEPT
     Dosage: 50 MG, WEEKLY
     Route: 058
     Dates: start: 201012
  12. GODASAL [Concomitant]
     Dosage: UNK
  13. KALNORMIN [Concomitant]
     Active Substance: POTASSIUM CHLORIDE
     Dosage: UNK

REACTIONS (2)
  - Anaemia [Unknown]
  - Diabetes mellitus [Unknown]

NARRATIVE: CASE EVENT DATE: 201411
